FAERS Safety Report 9659478 (Version 1)
Quarter: 2013Q4

REPORT INFORMATION
  Report Type: Spontaneous
  Country: EG (occurrence: EG)
  Receive Date: 20131031
  Receipt Date: 20131031
  Transmission Date: 20140711
  Serious: Yes (Life-Threatening, Hospitalization)
  Sender: FDA-Public Use
  Company Number: PHHY2013EG122736

PATIENT
  Age: 52 Year
  Sex: Female

DRUGS (4)
  1. VOLTAREN [Suspect]
     Indication: NASOPHARYNGITIS
     Dosage: UNK UKN, QD
     Dates: start: 20130929, end: 20131001
  2. VOLTAREN [Suspect]
     Indication: VIRAL INFECTION
  3. DIMECRON [Concomitant]
     Dosage: UNK UKN, UNK
  4. ANTIBIOTICS [Concomitant]
     Dosage: UNK UKN, UNK

REACTIONS (6)
  - Bacterial infection [Unknown]
  - Staphylococcal infection [Unknown]
  - Toxic epidermal necrolysis [Unknown]
  - Skin reaction [Not Recovered/Not Resolved]
  - Rash generalised [Unknown]
  - Drug hypersensitivity [Unknown]
